FAERS Safety Report 17522112 (Version 3)
Quarter: 2020Q2

REPORT INFORMATION
  Report Type: Spontaneous
  Country: US (occurrence: US)
  Receive Date: 20200310
  Receipt Date: 20200504
  Transmission Date: 20200713
  Serious: No
  Sender: FDA-Public Use
  Company Number: US-009507513-2003USA001621

PATIENT
  Sex: Female
  Weight: 48.07 kg

DRUGS (1)
  1. NEXPLANON [Suspect]
     Active Substance: ETONOGESTREL
     Indication: CONTRACEPTION
     Dosage: 1 ROD SUBDERMALLY EVERY 3 YEARS
     Route: 059
     Dates: start: 2015, end: 2020

REACTIONS (4)
  - Implant site scar [Unknown]
  - No adverse event [Unknown]
  - Overdose [Unknown]
  - Incorrect product administration duration [Unknown]
